FAERS Safety Report 9052531 (Version 3)
Quarter: 2013Q1

REPORT INFORMATION
  Report Type: Report from Study
  Country: US (occurrence: US)
  Receive Date: 20130207
  Receipt Date: 20130328
  Transmission Date: 20140127
  Serious: Yes (Hospitalization)
  Sender: FDA-Public Use
  Company Number: US-UCBSA-077611

PATIENT
  Age: 46 Year
  Sex: Male
  Weight: 110 kg

DRUGS (14)
  1. CIMZIA [Suspect]
     Indication: CROHN^S DISEASE
     Route: 058
     Dates: start: 20120130, end: 201301
  2. FLUCONAZOLE [Suspect]
  3. LEXAPRO [Concomitant]
     Indication: GENERALISED ANXIETY DISORDER
     Route: 048
     Dates: start: 2008
  4. SEROQUEL [Concomitant]
     Indication: BIPOLAR DISORDER
     Dosage: 100 MG QHS
     Route: 048
     Dates: start: 2008
  5. CLONAZEPAM [Concomitant]
     Indication: GENERALISED ANXIETY DISORDER
     Route: 048
     Dates: start: 2008
  6. LITHIUM [Concomitant]
     Indication: BIPOLAR DISORDER
     Route: 048
     Dates: start: 2008, end: 20130126
  7. LITHIUM [Concomitant]
     Indication: BIPOLAR DISORDER
     Route: 048
     Dates: start: 2008, end: 20130126
  8. SINGULAIR [Concomitant]
     Indication: SEASONAL ALLERGY
     Route: 048
     Dates: end: 20130126
  9. PROTONIX [Concomitant]
     Indication: GASTROOESOPHAGEAL REFLUX DISEASE
     Route: 048
     Dates: start: 2008, end: 20130126
  10. MESALAMINE [Concomitant]
     Indication: CROHN^S DISEASE
     Dates: start: 200711
  11. MESALAMINE [Concomitant]
     Indication: CROHN^S DISEASE
     Dates: start: 2004, end: 200711
  12. BENTYL [Concomitant]
     Indication: CROHN^S DISEASE
  13. PENTASA [Concomitant]
  14. ASACOL [Concomitant]

REACTIONS (1)
  - Rash maculo-papular [Recovered/Resolved]
